FAERS Safety Report 22112725 (Version 2)
Quarter: 2023Q2

REPORT INFORMATION
  Report Type: Spontaneous
  Country: RU (occurrence: RU)
  Receive Date: 20230319
  Receipt Date: 20230518
  Transmission Date: 20230722
  Serious: Yes (Hospitalization)
  Sender: FDA-Public Use
  Company Number: RU-drreddys-LIT/RUS/23/0162391

PATIENT
  Age: 59 Year
  Sex: Female

DRUGS (6)
  1. MELOXICAM [Suspect]
     Active Substance: MELOXICAM
     Indication: Osteochondrosis
  2. NIMESULIDE [Suspect]
     Active Substance: NIMESULIDE
     Indication: Osteochondrosis
  3. ETORICOXIB [Suspect]
     Active Substance: ETORICOXIB
     Indication: Osteochondrosis
  4. DEXAMETHASONE [Concomitant]
     Active Substance: DEXAMETHASONE
     Indication: Product used for unknown indication
     Dosage: 5 INJECTIONS
     Route: 030
  5. MIDOKALM [Concomitant]
     Indication: Product used for unknown indication
  6. Combilipen [Concomitant]
     Indication: Product used for unknown indication

REACTIONS (7)
  - Osteonecrosis [Unknown]
  - Osteoarthritis [Unknown]
  - Greater trochanteric pain syndrome [Unknown]
  - Bursitis [Unknown]
  - Osteopenia [Unknown]
  - Osteoporotic fracture [Unknown]
  - Vitamin D deficiency [Unknown]
